FAERS Safety Report 24611839 (Version 1)
Quarter: 2024Q4

REPORT INFORMATION
  Report Type: Spontaneous
  Country: IT (occurrence: IT)
  Receive Date: 20241113
  Receipt Date: 20241113
  Transmission Date: 20250115
  Serious: Yes (Death, Hospitalization, Other)
  Sender: IPCA
  Company Number: IT-IPCA LABORATORIES LIMITED-IPC-2024-IT-002643

PATIENT

DRUGS (1)
  1. HYDROXYCHLOROQUINE [Suspect]
     Active Substance: HYDROXYCHLOROQUINE
     Indication: Rheumatoid arthritis
     Dosage: 200 MILLIGRAM, BID
     Route: 048

REACTIONS (11)
  - Cardiogenic shock [Fatal]
  - Hypertrophic cardiomyopathy [Unknown]
  - Atrial fibrillation [Unknown]
  - Liver injury [Unknown]
  - Atrioventricular block complete [Unknown]
  - Oedema peripheral [Unknown]
  - Jugular vein distension [Unknown]
  - Crepitations [Unknown]
  - Peripheral coldness [Unknown]
  - Systolic dysfunction [Unknown]
  - Toxicity to various agents [Unknown]
